FAERS Safety Report 15369527 (Version 5)
Quarter: 2019Q2

REPORT INFORMATION
  Report Type: Spontaneous
  Country: US (occurrence: US)
  Receive Date: 20180911
  Receipt Date: 20190626
  Transmission Date: 20190711
  Serious: No
  Sender: FDA-Public Use
  Company Number: US-PFIZER INC-2018364554

PATIENT
  Age: 55 Year
  Sex: Female
  Weight: 66 kg

DRUGS (1)
  1. IBRANCE [Suspect]
     Active Substance: PALBOCICLIB
     Indication: BREAST CANCER METASTATIC
     Dosage: 125 MG, CYCLIC (1 CAPSULE 1-21 DAYS, Q (EVERY) 28 DAYS)
     Route: 048
     Dates: start: 20180711, end: 201906

REACTIONS (12)
  - Alopecia [Recovered/Resolved]
  - Pain [Unknown]
  - Skin fissures [Unknown]
  - Dry skin [Unknown]
  - Depression [Unknown]
  - Asthenia [Unknown]
  - Tongue disorder [Unknown]
  - Yellow skin [Unknown]
  - Neoplasm progression [Unknown]
  - Oral pain [Recovered/Resolved]
  - Fatigue [Unknown]
  - Bone disorder [Unknown]

NARRATIVE: CASE EVENT DATE: 2018
